FAERS Safety Report 10270182 (Version 3)
Quarter: 2014Q3

REPORT INFORMATION
  Report Type: Spontaneous
  Country: US (occurrence: None)
  Receive Date: 20140626
  Receipt Date: 20140929
  Transmission Date: 20150326
  Serious: Yes (Other)
  Sender: FDA-Public Use
  Company Number: UNT-2014-002128

PATIENT
  Age: 76 Year
  Sex: Male
  Weight: 77.1 kg

DRUGS (3)
  1. TRACLEER [Concomitant]
     Active Substance: BOSENTAN\BOSENTAN MONOHYDRATE
  2. ADCIRCA [Concomitant]
     Active Substance: TADALAFIL
  3. REMODULIN [Suspect]
     Active Substance: TREPROSTINIL
     Indication: PULMONARY ARTERIAL HYPERTENSION
     Route: 041
     Dates: start: 20081222

REACTIONS (15)
  - Dehydration [None]
  - Device dislocation [None]
  - Fall [None]
  - Nausea [None]
  - Heart rate increased [None]
  - Drug dose omission [None]
  - Periorbital contusion [None]
  - Fatigue [None]
  - Flushing [None]
  - Diarrhoea [None]
  - Loss of consciousness [None]
  - Cold sweat [None]
  - Peripheral swelling [None]
  - Device malfunction [None]
  - Contusion [None]

NARRATIVE: CASE EVENT DATE: 20140606
